FAERS Safety Report 5684880-8 (Version None)
Quarter: 2008Q1

REPORT INFORMATION
  Report Type: 
  Country: None (occurrence: None)
  Receive Date: 20080328
  Receipt Date: 20071113
  Transmission Date: 20080703
  Serious: Yes (Hospitalization, Other)
  Sender: FDA-Public Use
  Company Number: US-BRISTOL-MYERS SQUIBB COMPANY-13980370

PATIENT
  Age: 58 Year
  Sex: Male
  Weight: 90 kg

DRUGS (4)
  1. ERBITUX [Suspect]
     Indication: TONGUE NEOPLASM MALIGNANT STAGE UNSPECIFIED
     Route: 042
     Dates: start: 20071025, end: 20071025
  2. BENADRYL [Concomitant]
     Route: 042
     Dates: start: 20071025, end: 20071025
  3. DECADRON [Concomitant]
     Route: 042
     Dates: start: 20071025, end: 20071025
  4. ZANTAC [Concomitant]
     Route: 042
     Dates: start: 20071025, end: 20071025

REACTIONS (1)
  - INFUSION RELATED REACTION [None]
